FAERS Safety Report 23717383 (Version 1)
Quarter: 2024Q2

REPORT INFORMATION
  Report Type: Spontaneous
  Country: BR (occurrence: BR)
  Receive Date: 20240408
  Receipt Date: 20240408
  Transmission Date: 20240716
  Serious: Yes (Other)
  Sender: FDA-Public Use
  Company Number: BR-Accord-415112

PATIENT
  Age: 37 Year
  Sex: Male
  Weight: 80 kg

DRUGS (3)
  1. DIMETHYL FUMARATE [Suspect]
     Active Substance: DIMETHYL FUMARATE
     Indication: Multiple sclerosis
     Dosage: DAILY
     Route: 048
     Dates: start: 202111
  2. VORTIOXETINE [Concomitant]
     Active Substance: VORTIOXETINE
     Indication: Depression
     Route: 048
     Dates: start: 202202
  3. ZETRON [Concomitant]
     Indication: Depression
     Route: 048
     Dates: start: 202202

REACTIONS (5)
  - Erythromelalgia [Not Recovered/Not Resolved]
  - Flushing [Not Recovered/Not Resolved]
  - Product substitution issue [Unknown]
  - Condition aggravated [Not Recovered/Not Resolved]
  - Multiple sclerosis [Not Recovered/Not Resolved]

NARRATIVE: CASE EVENT DATE: 20230101
